FAERS Safety Report 8268906-3 (Version None)
Quarter: 2012Q1

REPORT INFORMATION
  Report Type: 
  Country: None (occurrence: None)
  Receive Date: 20120327
  Receipt Date: 20090513
  Transmission Date: 20120608
  Serious: Yes (Other)
  Sender: FDA-Public Use
  Company Number: PHEH2009US04773

PATIENT
  Age: 70 Year
  Sex: Male
  Weight: 93 kg

DRUGS (9)
  1. ASACOL [Concomitant]
  2. ASPIRIN [Concomitant]
  3. LIPITOR [Concomitant]
  4. GLEEVEC [Suspect]
     Indication: CHRONIC MYELOID LEUKAEMIA
     Dosage: 400 MG, QD
     Dates: start: 20090114
  5. TOPROL-XL [Concomitant]
  6. ZOLPIDEM [Concomitant]
  7. HYTRIN [Concomitant]
  8. HYDROCHLOROTHIAZIDE [Concomitant]
  9. NEXIUM (ESOMERPRAZOLE MAGNESIUM) [Concomitant]

REACTIONS (3)
  - CHRONIC MYELOID LEUKAEMIA TRANSFORMATION [None]
  - CHRONIC MYELOID LEUKAEMIA [None]
  - B PRECURSOR TYPE ACUTE LEUKAEMIA [None]
